FAERS Safety Report 9839057 (Version 2)
Quarter: 2014Q1

REPORT INFORMATION
  Report Type: Spontaneous
  Country: TR (occurrence: TR)
  Receive Date: 20140123
  Receipt Date: 20140127
  Transmission Date: 20141002
  Serious: Yes (Death, Hospitalization, Other)
  Sender: FDA-Public Use
  Company Number: PHHY2014TR004191

PATIENT
  Age: 21 Year
  Sex: Female

DRUGS (13)
  1. CICLOSPORIN [Suspect]
     Indication: IMMUNOSUPPRESSION
     Dosage: 250 MG, UNK
  2. CICLOSPORIN [Suspect]
     Indication: RENAL TRANSPLANT
  3. AZATHIOPRINE [Suspect]
     Indication: IMMUNOSUPPRESSION
     Dosage: 100 MG, UNK
  4. METHYLPREDNISOLONE [Suspect]
     Indication: IMMUNOSUPPRESSION
  5. DOXORUBICIN [Suspect]
     Indication: KAPOSI^S SARCOMA
     Dosage: ONCE DAILY, EVERY 02 WEEKS
     Route: 042
  6. BLEOMYCIN [Suspect]
     Indication: KAPOSI^S SARCOMA
     Dosage: 10 MG/M2, ONCE DAILY, EVERY 02 WEEKS
     Route: 042
  7. VINCRISTINE [Suspect]
     Indication: KAPOSI^S SARCOMA
     Dosage: 1 MG/M2, ONCE DAILY, EVERY 02 WEEKS
     Route: 042
  8. ETOPOSIDE [Suspect]
     Indication: KAPOSI^S SARCOMA
     Dosage: 100 MG/M2, 1-HOUR INFUSION ON DAYS 1-3, EVERY 4 WEEKS
     Route: 042
  9. IDARUBICIN [Suspect]
     Indication: ACUTE MYELOID LEUKAEMIA
     Dosage: 12 MG/M2 ON DAY 1-3
  10. CYTARABINE [Suspect]
     Indication: ACUTE MYELOID LEUKAEMIA
     Dosage: 100 MG/M2 ON DAY 1-7
  11. STEROID [Concomitant]
     Indication: RENAL TRANSPLANT
  12. ANTIBACTERIALS [Concomitant]
  13. ANTIFUNGALS [Concomitant]

REACTIONS (10)
  - Death [Fatal]
  - Acute myeloid leukaemia [Unknown]
  - Confusional state [Unknown]
  - General physical health deterioration [Unknown]
  - Dyspnoea [Unknown]
  - Bone marrow failure [Unknown]
  - Kaposi^s sarcoma [Unknown]
  - Neutropenic infection [Unknown]
  - Asthenia [Unknown]
  - Lymphadenopathy [Unknown]
